FAERS Safety Report 7220872-5 (Version None)
Quarter: 2011Q1

REPORT INFORMATION
  Report Type: 
  Country: None (occurrence: None)
  Receive Date: 20110112
  Receipt Date: 20101213
  Transmission Date: 20110831
  Serious: No
  Sender: FDA-Public Use
  Company Number: US-JNJFOC-20101006483

PATIENT
  Sex: Female

DRUGS (7)
  1. METFORMIN [Concomitant]
     Indication: DIABETES MELLITUS
  2. INVEGA SUSTENNA [Suspect]
     Route: 030
  3. INVEGA SUSTENNA [Suspect]
     Indication: SCHIZOAFFECTIVE DISORDER
     Route: 030
  4. ZYPREXA [Concomitant]
     Indication: PSYCHOTIC DISORDER
  5. ASTHMA INHALER [Concomitant]
     Indication: ASTHMA
  6. PROLIXIN [Concomitant]
     Indication: PSYCHOTIC DISORDER
  7. COGENTIN [Concomitant]
     Indication: PRODUCT USED FOR UNKNOWN INDICATION

REACTIONS (1)
  - INJECTION SITE NODULE [None]
